FAERS Safety Report 10573459 (Version 3)
Quarter: 2014Q4

REPORT INFORMATION
  Report Type: Spontaneous
  Country: PL (occurrence: PL)
  Receive Date: 20141110
  Receipt Date: 20141203
  Transmission Date: 20150529
  Serious: Yes (Hospitalization)
  Sender: FDA-Public Use
  Company Number: PL-ASTRAZENECA-2014SE83763

PATIENT
  Age: 25848 Day
  Sex: Female

DRUGS (12)
  1. BRILIQUE [Suspect]
     Active Substance: TICAGRELOR
     Indication: STENT PLACEMENT
     Route: 048
     Dates: start: 20140703
  2. GLICLAZIDE [Concomitant]
     Active Substance: GLICLAZIDE
  3. ASA [Concomitant]
     Active Substance: ASPIRIN
  4. METFORMIN [Concomitant]
     Active Substance: METFORMIN HYDROCHLORIDE
  5. LEVOTHYROXINE [Concomitant]
     Active Substance: LEVOTHYROXINE
  6. CEFUROXIME. [Concomitant]
     Active Substance: CEFUROXIME
     Dates: start: 20141027, end: 20141102
  7. RAMIPRIL. [Concomitant]
     Active Substance: RAMIPRIL
  8. CEFUROXIME. [Concomitant]
     Active Substance: CEFUROXIME
     Route: 051
  9. ITOPRIDE [Concomitant]
     Active Substance: ITOPRIDE
  10. PANTOPRAZOLE [Concomitant]
     Active Substance: PANTOPRAZOLE SODIUM
  11. ATORVASTATIN [Concomitant]
     Active Substance: ATORVASTATIN
  12. MAGNESIUM+KALIUM [Concomitant]
     Dosage: EVERY DAY

REACTIONS (8)
  - Head injury [Unknown]
  - Diarrhoea [Unknown]
  - Central nervous system lesion [Unknown]
  - Wound haemorrhage [Unknown]
  - Medication residue present [Recovered/Resolved]
  - Loss of consciousness [Unknown]
  - Fall [Unknown]
  - Subcutaneous haematoma [Unknown]

NARRATIVE: CASE EVENT DATE: 20141022
